FAERS Safety Report 5001817-5 (Version None)
Quarter: 2006Q2

REPORT INFORMATION
  Report Type: 
  Country: None (occurrence: None)
  Receive Date: 20060515
  Receipt Date: 20060508
  Transmission Date: 20061013
  Serious: Yes (Other)
  Sender: FDA-Public Use
  Company Number: CA-GLAXOSMITHKLINE-A0605317A

PATIENT
  Age: 55 Year
  Sex: Female

DRUGS (2)
  1. PAXIL [Suspect]
     Indication: DRUG USE FOR UNKNOWN INDICATION
     Dosage: 30MG PER DAY
     Route: 048
  2. CLONAZEPAM [Concomitant]

REACTIONS (4)
  - EXTRASYSTOLES [None]
  - INAPPROPRIATE ANTIDIURETIC HORMONE SECRETION [None]
  - LETHARGY [None]
  - SOMNOLENCE [None]
